FAERS Safety Report 5109340-4 (Version None)
Quarter: 2006Q3

REPORT INFORMATION
  Report Type: 
  Country: None (occurrence: None)
  Receive Date: 20060918
  Receipt Date: 20060905
  Transmission Date: 20061208
  Serious: Yes (Other)
  Sender: FDA-Public Use
  Company Number: 2006110339

PATIENT
  Age: 57 Year
  Sex: Male

DRUGS (4)
  1. LIPITOR [Suspect]
     Indication: BLOOD CHOLESTEROL INCREASED
     Dosage: 40 MG (1 IN 1 D)
     Dates: start: 20010101, end: 20020501
  2. LIPITOR [Suspect]
     Indication: LOW DENSITY LIPOPROTEIN INCREASED
     Dosage: 40 MG (1 IN 1 D)
     Dates: start: 20010101, end: 20020501
  3. GEMFIBROZIL [Suspect]
     Indication: BLOOD CHOLESTEROL INCREASED
     Dates: start: 20030101, end: 20030401
  4. GEMFIBROZIL [Suspect]
     Indication: LOW DENSITY LIPOPROTEIN INCREASED
     Dates: start: 20030101, end: 20030401

REACTIONS (5)
  - AUTOIMMUNE HEPATITIS [None]
  - BLOOD CHOLESTEROL INCREASED [None]
  - HEPATIC FIBROSIS [None]
  - RESTLESSNESS [None]
  - SMOOTH MUSCLE ANTIBODY POSITIVE [None]
